FAERS Safety Report 4760923-0 (Version None)
Quarter: 2005Q3

REPORT INFORMATION
  Report Type: 
  Country: None (occurrence: None)
  Receive Date: 20050901
  Receipt Date: 20050822
  Transmission Date: 20060218
  Serious: Yes (Other)
  Sender: FDA-Public Use
  Company Number: 2005118821

PATIENT
  Age: 51 Year
  Sex: Female
  Weight: 103.4201 kg

DRUGS (4)
  1. CELEBREX [Suspect]
     Indication: TENDONITIS
     Dosage: 200 MG (200 MG, 1 IN 1 D), ORAL
     Route: 048
     Dates: start: 20050815
  2. PRILOSEC [Concomitant]
  3. ZOLOFT [Concomitant]
  4. ALPRAZOLAM [Concomitant]

REACTIONS (7)
  - ASTHMA [None]
  - CHEST PAIN [None]
  - CHEST WALL PAIN [None]
  - CONDITION AGGRAVATED [None]
  - COUGH [None]
  - DYSPNOEA [None]
  - PHARYNGOLARYNGEAL PAIN [None]
